FAERS Safety Report 21192488 (Version 1)
Quarter: 2022Q3

REPORT INFORMATION
  Report Type: Spontaneous
  Country: IT (occurrence: IT)
  Receive Date: 20220809
  Receipt Date: 20220809
  Transmission Date: 20221027
  Serious: Yes (Death, Hospitalization, Other)
  Sender: FDA-Public Use
  Company Number: IT-ALVOGEN-2022-ALVOGEN-120721

PATIENT
  Age: 56 Year
  Sex: Male

DRUGS (3)
  1. DEXAMETHASONE [Suspect]
     Active Substance: DEXAMETHASONE
     Indication: COVID-19 pneumonia
  2. HEPARIN [Suspect]
     Active Substance: HEPARIN SODIUM
     Indication: Pulmonary embolism
     Dosage: LOW-MOLECULAR-WEIGHT HEPARIN
  3. OXYGEN [Concomitant]
     Active Substance: OXYGEN
     Indication: COVID-19 pneumonia

REACTIONS (6)
  - Hepatitis B reactivation [Fatal]
  - Immune thrombocytopenia [Fatal]
  - Jaundice [Fatal]
  - Portal vein thrombosis [Fatal]
  - Hepatic failure [Fatal]
  - Nosocomial infection [Fatal]
